FAERS Safety Report 5628545-7 (Version None)
Quarter: 2008Q1

REPORT INFORMATION
  Report Type: 
  Country: None (occurrence: None)
  Receive Date: 20080215
  Receipt Date: 20080205
  Transmission Date: 20080703
  Serious: Yes (Hospitalization)
  Sender: FDA-Public Use
  Company Number: JP-PFIZER INC-2008011487

PATIENT
  Age: 62 Year
  Sex: Female

DRUGS (6)
  1. AMLODIN [Suspect]
     Route: 048
  2. AMLODIN [Suspect]
     Route: 048
     Dates: start: 20060929, end: 20071108
  3. OLMETEC [Suspect]
     Indication: ESSENTIAL HYPERTENSION
     Route: 048
     Dates: start: 20060914, end: 20071108
  4. TENORMIN [Suspect]
     Route: 048
     Dates: start: 20070301, end: 20071108
  5. MUCOSTA [Concomitant]
     Route: 048
     Dates: start: 20070831, end: 20071108
  6. DEPAS [Concomitant]
     Route: 048
     Dates: start: 20070326, end: 20071108

REACTIONS (1)
  - FEMUR FRACTURE [None]
